FAERS Safety Report 23516737 (Version 2)
Quarter: 2025Q1

REPORT INFORMATION
  Report Type: Spontaneous
  Country: FR (occurrence: FR)
  Receive Date: 20240213
  Receipt Date: 20250212
  Transmission Date: 20250409
  Serious: Yes (Other)
  Sender: RANBAXY
  Company Number: FR-SUN PHARMACEUTICAL INDUSTRIES LTD-2024RR-430862

PATIENT
  Age: 66 Year
  Sex: Female
  Weight: 49 kg

DRUGS (2)
  1. ATORVASTATIN [Interacting]
     Active Substance: ATORVASTATIN
     Indication: Hypercholesterolaemia
     Route: 048
  2. ERYTHROMYCIN [Interacting]
     Active Substance: ERYTHROMYCIN
     Indication: Intestinal obstruction
     Route: 065
     Dates: start: 20230701

REACTIONS (2)
  - Hepatic cytolysis [Recovering/Resolving]
  - Acute hepatic failure [Recovering/Resolving]

NARRATIVE: CASE EVENT DATE: 20230904
